FAERS Safety Report 5399555-2 (Version None)
Quarter: 2007Q3

REPORT INFORMATION
  Report Type: 
  Country: None (occurrence: None)
  Receive Date: 20070727
  Receipt Date: 20070716
  Transmission Date: 20080115
  Serious: Yes (Death, Hospitalization, Other)
  Sender: FDA-Public Use
  Company Number: US-PFIZER INC-2006150909

PATIENT
  Sex: Male
  Weight: 131.5 kg

DRUGS (9)
  1. BEXTRA [Suspect]
     Indication: GOUT
     Dates: start: 20020101, end: 20040423
  2. BEXTRA [Suspect]
     Indication: PAIN
  3. VIOXX [Suspect]
     Indication: GOUT
     Route: 048
     Dates: start: 19990908, end: 20040423
  4. VIOXX [Suspect]
     Indication: ARTHRITIS
  5. VIOXX [Suspect]
     Indication: PAIN
  6. ALLOPURINOL [Concomitant]
     Indication: GOUT
     Dates: start: 20000224, end: 20030601
  7. COLCHICINE [Concomitant]
     Indication: GOUT
     Dates: start: 20000301, end: 20031001
  8. HYDROCODONE BITARTRATE [Concomitant]
     Indication: PAIN
     Dates: start: 20020703, end: 20040401
  9. INDOMETHACIN [Concomitant]
     Indication: PAIN
     Dates: start: 20011211, end: 20040101

REACTIONS (3)
  - CARDIAC FAILURE CONGESTIVE [None]
  - CARDIOVASCULAR DISORDER [None]
  - MYOCARDIAL INFARCTION [None]
